FAERS Safety Report 10959778 (Version 1)
Quarter: 2015Q1

REPORT INFORMATION
  Report Type: Report from Study
  Country: GB (occurrence: GB)
  Receive Date: 20150327
  Receipt Date: 20150327
  Transmission Date: 20150721
  Serious: Yes (Other)
  Sender: FDA-Public Use
  Company Number: GB-ROCHE-1555534

PATIENT

DRUGS (8)
  1. BEVACIZUMAB [Suspect]
     Active Substance: BEVACIZUMAB
     Indication: COLORECTAL CANCER METASTATIC
     Route: 042
  2. BEVACIZUMAB [Suspect]
     Active Substance: BEVACIZUMAB
     Indication: COLORECTAL CANCER
  3. 5-FLUOROURACIL [Suspect]
     Active Substance: FLUOROURACIL
     Indication: COLORECTAL CANCER METASTATIC
     Dosage: 400 MGM2 IV BOLUS INJECTION OF 5-FU WAS THEN ADMINISTERED OVER 5 MIN FOLLOWED BY 2400 MGM2 5-FLUROUR
     Route: 040
  4. FOLINIC ACID [Suspect]
     Active Substance: LEUCOVORIN
     Indication: COLORECTAL CANCER METASTATIC
     Dosage: INFUSION OF 180 MGM2 IV INFUSION OVER 30 MIN FOLLOWED BY 350 MG IV INFUSION D,L-FOLINIC ACID OR 175
     Route: 042
  5. FOLINIC ACID [Suspect]
     Active Substance: LEUCOVORIN
     Indication: COLORECTAL CANCER
  6. 5-FLUOROURACIL [Suspect]
     Active Substance: FLUOROURACIL
     Indication: COLORECTAL CANCER
     Dosage: 2400 MGM2 5-FLUROURACIL IV INFUSION OVER 46 H
     Route: 042
  7. IRINOTECAN [Suspect]
     Active Substance: IRINOTECAN
     Indication: COLORECTAL CANCER METASTATIC
     Route: 042
  8. IRINOTECAN [Suspect]
     Active Substance: IRINOTECAN
     Indication: COLORECTAL CANCER

REACTIONS (6)
  - Neutrophil count abnormal [Unknown]
  - White blood cell count abnormal [Unknown]
  - Pain [Unknown]
  - Lethargy [Unknown]
  - Platelet count abnormal [Unknown]
  - Diarrhoea [Unknown]
